FAERS Safety Report 10601820 (Version 1)
Quarter: 2014Q4

REPORT INFORMATION
  Report Type: Spontaneous
  Country: GB (occurrence: GB)
  Receive Date: 20141124
  Receipt Date: 20141124
  Transmission Date: 20150529
  Serious: Yes (Disabling)
  Sender: FDA-Public Use
  Company Number: PHHY2014GB150128

PATIENT
  Age: 47 Year
  Sex: Male

DRUGS (1)
  1. SIMVASTATIN. [Suspect]
     Active Substance: SIMVASTATIN
     Indication: BLOOD CHOLESTEROL INCREASED
     Dosage: UNK
     Route: 048

REACTIONS (19)
  - Balance disorder [Unknown]
  - Self esteem decreased [Unknown]
  - Psychiatric symptom [Unknown]
  - Fatigue [Unknown]
  - Frustration [Unknown]
  - Myalgia [Unknown]
  - Muscular weakness [Unknown]
  - Quality of life decreased [Unknown]
  - Dizziness [Unknown]
  - Drug ineffective [Unknown]
  - Social problem [Unknown]
  - Movement disorder [Unknown]
  - Abdominal distension [Unknown]
  - Headache [Unknown]
  - Impaired work ability [Unknown]
  - Feeling abnormal [Unknown]
  - Somnolence [Unknown]
  - Insomnia [Unknown]
  - Diarrhoea [Unknown]
